FAERS Safety Report 17679368 (Version 3)
Quarter: 2021Q1

REPORT INFORMATION
  Report Type: Report from Study
  Country: CO (occurrence: CO)
  Receive Date: 20200417
  Receipt Date: 20210115
  Transmission Date: 20210419
  Serious: Yes (Other)
  Sender: FDA-Public Use
  Company Number: CO-JNJFOC-20190405933

PATIENT
  Age: 67 Year
  Sex: Male
  Weight: 52 kg

DRUGS (9)
  1. STELARA [Suspect]
     Active Substance: USTEKINUMAB
     Route: 058
     Dates: start: 20200207
  2. STELARA [Suspect]
     Active Substance: USTEKINUMAB
     Route: 058
     Dates: start: 20190705, end: 20190910
  3. CALCITRIOL. [Concomitant]
     Active Substance: CALCITRIOL
  4. STELARA [Suspect]
     Active Substance: USTEKINUMAB
     Route: 058
     Dates: start: 20170727, end: 20170727
  5. LYRICA [Concomitant]
     Active Substance: PREGABALIN
  6. STELARA [Suspect]
     Active Substance: USTEKINUMAB
     Indication: PSORIASIS
     Route: 058
     Dates: start: 20170627, end: 20170627
  7. STELARA [Suspect]
     Active Substance: USTEKINUMAB
     Route: 058
     Dates: start: 20190312, end: 20190312
  8. STELARA [Suspect]
     Active Substance: USTEKINUMAB
     Route: 058
     Dates: start: 20171025, end: 20181126
  9. CHLORPHENIRAMINE                   /00072501/ [Concomitant]
     Active Substance: CHLORPHENIRAMINE

REACTIONS (6)
  - Hypoacusis [Recovering/Resolving]
  - Product dose omission issue [Unknown]
  - Monoplegia [Recovering/Resolving]
  - Hypokinesia [Unknown]
  - Psoriasis [Recovered/Resolved]
  - Dizziness [Recovered/Resolved]

NARRATIVE: CASE EVENT DATE: 201707
